FAERS Safety Report 7704276-4 (Version None)
Quarter: 2011Q3

REPORT INFORMATION
  Report Type: 
  Country: None (occurrence: None)
  Receive Date: 20110823
  Receipt Date: 20110817
  Transmission Date: 20111222
  Serious: Yes (Hospitalization)
  Sender: FDA-Public Use
  Company Number: PHHY2010US84282

PATIENT
  Sex: Male
  Weight: 17.3 kg

DRUGS (3)
  1. TOBI [Suspect]
     Indication: CYSTIC FIBROSIS
     Dosage: 300 MG, BID (ONE AMPULE 28 DAYS ON AND 28 DAYS OFF)
     Dates: start: 20080618
  2. PULMOZYME [Concomitant]
     Dosage: 2.5 ML, BID
  3. TOBI [Suspect]
     Dates: start: 20110324

REACTIONS (3)
  - LUNG INFECTION [None]
  - UPPER RESPIRATORY TRACT INFECTION [None]
  - INFECTIVE PULMONARY EXACERBATION OF CYSTIC FIBROSIS [None]
